FAERS Safety Report 16112921 (Version 2)
Quarter: 2019Q1

REPORT INFORMATION
  Report Type: Spontaneous
  Country: US (occurrence: US)
  Receive Date: 20190325
  Receipt Date: 20190327
  Transmission Date: 20190418
  Serious: Yes (Hospitalization)
  Sender: FDA-Public Use
  Company Number: US-BAUSCH-BL-2019-008809

PATIENT
  Sex: Male

DRUGS (7)
  1. LACTULOSE. [Concomitant]
     Active Substance: LACTULOSE
     Indication: DETOXIFICATION
  2. XIFAXAN [Suspect]
     Active Substance: RIFAXIMIN
     Indication: HEPATIC CIRRHOSIS
  3. SPIRONOLACTONE. [Concomitant]
     Active Substance: SPIRONOLACTONE
     Indication: ASCITES
  4. LACTULOSE. [Concomitant]
     Active Substance: LACTULOSE
     Indication: CONFUSIONAL STATE
  5. XIFAXAN [Suspect]
     Active Substance: RIFAXIMIN
     Indication: NON-ALCOHOLIC STEATOHEPATITIS
     Route: 065
     Dates: start: 201808
  6. LACTULOSE. [Concomitant]
     Active Substance: LACTULOSE
     Indication: ASCITES
     Dosage: ONE DOSE TWO TIMES A DAY
     Route: 048
  7. SPIRONOLACTONE. [Concomitant]
     Active Substance: SPIRONOLACTONE
     Dosage: DECREASED THE DOSE TO A HALF-TABLET (50 MG)

REACTIONS (1)
  - Hepatic failure [Not Recovered/Not Resolved]
